FAERS Safety Report 7516380-4 (Version None)
Quarter: 2011Q2

REPORT INFORMATION
  Report Type: 
  Country: None (occurrence: None)
  Receive Date: 20110428
  Receipt Date: 20101229
  Transmission Date: 20111010
  Serious: Yes (Hospitalization)
  Sender: FDA-Public Use
  Company Number: 2010PROUSA00155

PATIENT
  Age: 65 Year
  Sex: Male
  Weight: 79.3 kg

DRUGS (5)
  1. PROVENGE [Suspect]
     Indication: PROSTATE CANCER METASTATIC
     Dosage: 250 ML, SINGLE, INTRAVENOUS; 250 ML, SINGLE, INTRAVENOUS; 250 ML, SINGLE, INTRAVENOUS
     Route: 042
     Dates: start: 20101008, end: 20101008
  2. PROVENGE [Suspect]
     Indication: PROSTATE CANCER METASTATIC
     Dosage: 250 ML, SINGLE, INTRAVENOUS; 250 ML, SINGLE, INTRAVENOUS; 250 ML, SINGLE, INTRAVENOUS
     Route: 042
     Dates: start: 20101104, end: 20101104
  3. PROVENGE [Suspect]
     Indication: PROSTATE CANCER METASTATIC
     Dosage: 250 ML, SINGLE, INTRAVENOUS; 250 ML, SINGLE, INTRAVENOUS; 250 ML, SINGLE, INTRAVENOUS
     Route: 042
     Dates: start: 20101118, end: 20101118
  4. PROVENGE [Suspect]
  5. PROVENGE [Suspect]

REACTIONS (1)
  - DEVICE RELATED INFECTION [None]
